FAERS Safety Report 6022835-4 (Version None)
Quarter: 2008Q4

REPORT INFORMATION
  Report Type: 
  Country: None (occurrence: None)
  Receive Date: 20081230
  Receipt Date: 20080325
  Transmission Date: 20090506
  Serious: No
  Sender: FDA-Public Use
  Company Number: US-ABBOTT-08P-163-0444472-00

PATIENT
  Sex: Female
  Weight: 59.02 kg

DRUGS (2)
  1. OMNICEF [Suspect]
     Indication: PHARYNGITIS STREPTOCOCCAL
     Route: 048
     Dates: start: 20080229, end: 20080309
  2. OMNICEF [Suspect]
     Route: 048
     Dates: start: 20080325

REACTIONS (2)
  - OROPHARYNGEAL PAIN [None]
  - STREPTOCOCCAL IDENTIFICATION TEST POSITIVE [None]
